FAERS Safety Report 9696867 (Version 1)
Quarter: 2013Q4

REPORT INFORMATION
  Report Type: Spontaneous
  Country: US (occurrence: US)
  Receive Date: 20131119
  Receipt Date: 20131119
  Transmission Date: 20140711
  Serious: No
  Sender: FDA-Public Use
  Company Number: US-GILEAD-2007-0013811

PATIENT
  Sex: Female
  Weight: 82.1 kg

DRUGS (14)
  1. LETAIRIS [Suspect]
     Indication: PULMONARY ARTERIAL HYPERTENSION
     Route: 048
  2. COMMIT [Concomitant]
     Route: 048
  3. LASIX [Concomitant]
     Route: 048
  4. POTASSIUM CHLORIDE [Concomitant]
     Route: 048
  5. MAG-OXIDE [Concomitant]
     Route: 048
  6. TRACLEER [Concomitant]
     Route: 048
  7. VENTAVIS [Concomitant]
     Dosage: 10 MCG/ML 6-9XD
     Route: 055
  8. VICODIN [Concomitant]
     Dosage: 5-500 MG PRN
     Route: 048
  9. AVANDIA [Concomitant]
     Route: 048
  10. GLUCOPHAGE [Concomitant]
     Route: 048
  11. HUMULIN N [Concomitant]
     Route: 058
  12. ELAVIL [Concomitant]
     Route: 048
  13. VALIUM [Concomitant]
     Route: 048
  14. CELEBREX [Concomitant]
     Route: 048

REACTIONS (1)
  - Gastrointestinal disorder [Unknown]
